FAERS Safety Report 5071146-2 (Version None)
Quarter: 2006Q3

REPORT INFORMATION
  Report Type: 
  Country: None (occurrence: None)
  Receive Date: 20060804
  Receipt Date: 20060302
  Transmission Date: 20061208
  Serious: No
  Sender: FDA-Public Use
  Company Number: US-GLAXOSMITHKLINE-A0595875A

PATIENT
  Age: 44 Year
  Sex: Female

DRUGS (1)
  1. NICORETTE [Suspect]
     Dates: start: 20060301, end: 20060301

REACTIONS (4)
  - GLOSSODYNIA [None]
  - SWOLLEN TONGUE [None]
  - THROAT IRRITATION [None]
  - THROAT TIGHTNESS [None]
